FAERS Safety Report 9307885 (Version 3)
Quarter: 2014Q2

REPORT INFORMATION
  Report Type: Spontaneous
  Country: US (occurrence: US)
  Receive Date: 20130524
  Receipt Date: 20140411
  Transmission Date: 20141212
  Serious: Yes (Hospitalization)
  Sender: FDA-Public Use
  Company Number: US-BAYER-2013-064487

PATIENT
  Age: 28 Year
  Sex: Female
  Weight: 53.06 kg

DRUGS (5)
  1. YAZ [Suspect]
     Dosage: UNK
  2. YASMIN [Suspect]
     Dosage: UNK
     Dates: start: 200209, end: 200711
  3. RANITIDINE [Concomitant]
     Dosage: 150 MG, UNK
  4. VALTREX [Concomitant]
     Dosage: 1 G, UNK
  5. PREDNISONE [Concomitant]
     Dosage: 20 MG, UNK

REACTIONS (2)
  - Deep vein thrombosis [Recovered/Resolved]
  - Injury [Recovered/Resolved]
